FAERS Safety Report 19983578 (Version 1)
Quarter: 2021Q4

REPORT INFORMATION
  Report Type: Spontaneous
  Country: US (occurrence: US)
  Receive Date: 20211022
  Receipt Date: 20211022
  Transmission Date: 20220303
  Serious: Yes (Other)
  Sender: FDA-Public Use
  Company Number: US-STRIDES ARCOLAB LIMITED-2021SP028856

PATIENT
  Age: 41 Year
  Sex: Male

DRUGS (2)
  1. MYCOPHENOLATE MOFETIL [Suspect]
     Active Substance: MYCOPHENOLATE MOFETIL
     Indication: Lupus nephritis
     Dosage: UNK
     Route: 065
  2. SOLU-MEDROL [Suspect]
     Active Substance: METHYLPREDNISOLONE SODIUM SUCCINATE
     Indication: Lupus nephritis
     Dosage: UNK, INDUCTION THERAPY FOR 3 DAYS WITH IV METHYLPREDNISOLONE (SOLUMEDROL)
     Route: 042

REACTIONS (7)
  - Mitral valve incompetence [Unknown]
  - Aortic valve incompetence [Unknown]
  - Perforation [Unknown]
  - Meningitis bacterial [Unknown]
  - Streptococcal endocarditis [Unknown]
  - Abscess [Unknown]
  - Off label use [Unknown]
